FAERS Safety Report 8953230 (Version 1)
Quarter: 2012Q4

REPORT INFORMATION
  Report Type: 
  Country: US (occurrence: US)
  Receive Date: 20121206
  Receipt Date: 20121206
  Transmission Date: 20130627
  Serious: No
  Sender: FDA-Public Use
  Company Number: US-009507513-1212USA000397

PATIENT
  Sex: Female

DRUGS (4)
  1. JANUVIA [Suspect]
     Indication: DIABETES MELLITUS
     Dosage: 50 mg, qd
     Route: 048
     Dates: start: 201209
  2. METFORMIN [Concomitant]
  3. GLIMEPRID [Concomitant]
  4. GABAPENTIN [Concomitant]

REACTIONS (4)
  - Neuropathy peripheral [Unknown]
  - Drug ineffective [Unknown]
  - Blood glucose increased [Unknown]
  - Nausea [Unknown]
